FAERS Safety Report 22171259 (Version 1)
Quarter: 2023Q2

REPORT INFORMATION
  Report Type: Spontaneous
  Country: US (occurrence: None)
  Receive Date: 20230402
  Receipt Date: 20230402
  Transmission Date: 20230721
  Serious: No
  Sender: FDA-Public Use
  Company Number: None

PATIENT

DRUGS (1)
  1. PROCRIT [Suspect]
     Active Substance: ERYTHROPOIETIN
     Indication: Chronic kidney disease
     Dosage: OTHER STRENGTH : 10,000U/ML ;?OTHER QUANTITY : 10,000 UNITS;?OTHER FREQUENCY : N/A;?
     Route: 058

REACTIONS (1)
  - Hospitalisation [None]
